FAERS Safety Report 12401958 (Version 3)
Quarter: 2016Q2

REPORT INFORMATION
  Report Type: Spontaneous
  Country: US (occurrence: US)
  Receive Date: 20160525
  Receipt Date: 20160628
  Transmission Date: 20160815
  Serious: No
  Sender: FDA-Public Use
  Company Number: US-PFIZER INC-2016270655

PATIENT
  Age: 69 Year
  Sex: Male

DRUGS (3)
  1. MEXILETINE [Concomitant]
     Active Substance: MEXILETINE
     Dosage: UNK
  2. TUMS [Concomitant]
     Active Substance: CALCIUM CARBONATE
     Indication: GASTRIC DISORDER
     Dosage: UNK
  3. AMIODARONE HCL [Suspect]
     Active Substance: AMIODARONE HYDROCHLORIDE
     Dosage: UNK
     Route: 065

REACTIONS (2)
  - Vomiting [Unknown]
  - Nausea [Unknown]
